FAERS Safety Report 8013692-5 (Version None)
Quarter: 2011Q4

REPORT INFORMATION
  Report Type: 
  Country: None (occurrence: None)
  Receive Date: 20111221
  Receipt Date: 20111221
  Transmission Date: 20120403
  Serious: Yes (Other)
  Sender: FDA-Public Use
  Company Number: None

PATIENT
  Age: 57 Year
  Sex: Male
  Weight: 87.9 kg

DRUGS (2)
  1. MANNITOL 25% [Suspect]
     Dosage: 10 ML OVER 2 MINUTES IA
     Route: 042
     Dates: start: 20111208
  2. TEMODAR [Suspect]
     Indication: GLIOBLASTOMA MULTIFORME
     Dosage: 100 MG/M2 X 1 IA
     Route: 042
     Dates: start: 20111208

REACTIONS (3)
  - BRAIN OEDEMA [None]
  - BRAIN STEM MICROHAEMORRHAGE [None]
  - NERVOUS SYSTEM DISORDER [None]
